FAERS Safety Report 8514654-1 (Version None)
Quarter: 2012Q3

REPORT INFORMATION
  Report Type: 
  Country: None (occurrence: None)
  Receive Date: 20120717
  Receipt Date: 20120712
  Transmission Date: 20120928
  Serious: Yes (Death, Hospitalization, Other)
  Sender: FDA-Public Use
  Company Number: FR-MSD-2012SP029261

PATIENT

DRUGS (4)
  1. NEORECORMON [Concomitant]
     Indication: ANAEMIA
     Dosage: 3000 DF, QW
     Dates: start: 20110512
  2. VIRAFERONPEG [Suspect]
     Indication: HEPATITIS C
     Dosage: 80 A?G, QW
     Dates: start: 20110913, end: 20120226
  3. RIBAVIRIN [Suspect]
     Indication: HEPATITIS C
     Dosage: 400 MG, QD
     Dates: start: 20110914, end: 20120226
  4. VICTRELIS [Suspect]
     Indication: HEPATITIS C
     Dosage: 600 MG, QD
     Dates: start: 20110914, end: 20120226

REACTIONS (1)
  - HEPATIC NEOPLASM MALIGNANT [None]
